FAERS Safety Report 7421829-1 (Version None)
Quarter: 2011Q2

REPORT INFORMATION
  Report Type: 
  Country: None (occurrence: None)
  Receive Date: 20110418
  Receipt Date: 20110411
  Transmission Date: 20111010
  Serious: Yes (Other)
  Sender: FDA-Public Use
  Company Number: GB-TEVA-276899ISR

PATIENT
  Sex: Male

DRUGS (2)
  1. METHOTREXATE [Suspect]
     Indication: PROSTATE CANCER
  2. SULFASALAZINE [Suspect]

REACTIONS (3)
  - HEPATITIS C [None]
  - BONE EROSION [None]
  - SERONEGATIVE ARTHRITIS [None]
